FAERS Safety Report 17716205 (Version 1)
Quarter: 2020Q2

REPORT INFORMATION
  Report Type: Spontaneous
  Country: US (occurrence: US)
  Receive Date: 20200428
  Receipt Date: 20200428
  Transmission Date: 20200714
  Serious: No
  Sender: FDA-Public Use
  Company Number: US-GLAXOSMITHKLINE-US2020AMR071557

PATIENT
  Age: 77 Year
  Sex: Female

DRUGS (1)
  1. NUCALA [Suspect]
     Active Substance: MEPOLIZUMAB
     Indication: PRODUCT USED FOR UNKNOWN INDICATION
     Dosage: UNK
     Route: 065

REACTIONS (5)
  - Social problem [Unknown]
  - Product dose omission [Unknown]
  - Dyspnoea [Unknown]
  - Headache [Unknown]
  - Painful respiration [Unknown]

NARRATIVE: CASE EVENT DATE: 20200423
